FAERS Safety Report 8763231 (Version 4)
Quarter: 2012Q4

REPORT INFORMATION
  Report Type: 
  Country: IL (occurrence: IL)
  Receive Date: 20120831
  Receipt Date: 20120930
  Transmission Date: 20130627
  Serious: Yes (Other)
  Sender: FDA-Public Use
  Company Number: IL-US-EMD SERONO, INC.-7157774

PATIENT
  Age: 20 Year
  Sex: Male

DRUGS (6)
  1. SNRI (SEROTONIN NOREPINEPHRINE REUPTAKE INHIBITORS) [Concomitant]
     Indication: DEPRESSION
  2. REBIF [Suspect]
     Indication: RELAPSING-REMITTING MULTIPLE SCLEROSIS
     Route: 058
     Dates: start: 20120821, end: 20120903
  3. REBIF [Suspect]
     Route: 058
     Dates: start: 20120904, end: 20120916
  4. REBIF [Suspect]
     Route: 058
     Dates: start: 20120916, end: 20120918
  5. REBIF [Suspect]
     Route: 058
     Dates: start: 20120919
  6. PROVIGIL (MODAFINIL) [Concomitant]
     Indication: PRODUCT USED FOR UNKNOWN INDICATION

REACTIONS (9)
  - Diabetes mellitus [Not Recovered/Not Resolved]
  - Blindness unilateral [Not Recovered/Not Resolved]
  - Multiple sclerosis relapse [Recovered/Resolved with Sequelae]
  - Tremor [Recovered/Resolved]
  - Movement disorder [Recovered/Resolved]
  - Viral infection [Not Recovered/Not Resolved]
  - Insomnia [Not Recovered/Not Resolved]
  - Vomiting [Recovered/Resolved]
  - Skin sensitisation [Not Recovered/Not Resolved]
